FAERS Safety Report 12053840 (Version 1)
Quarter: 2016Q1

REPORT INFORMATION
  Report Type: Report from Study
  Country: US (occurrence: US)
  Receive Date: 20160209
  Receipt Date: 20160209
  Transmission Date: 20160526
  Serious: No
  Sender: FDA-Public Use
  Company Number: US-SA-2015SA188691

PATIENT
  Age: 67 Year
  Sex: Female

DRUGS (8)
  1. PRALUENT [Suspect]
     Active Substance: ALIROCUMAB
     Indication: BLOOD CHOLESTEROL INCREASED
     Route: 065
     Dates: start: 20151104
  2. PRALUENT [Suspect]
     Active Substance: ALIROCUMAB
     Indication: BLOOD CHOLESTEROL INCREASED
     Route: 065
     Dates: start: 20151008, end: 20151008
  3. ALIROCUMAB PREFILLED PEN [Concomitant]
     Active Substance: ALIROCUMAB
     Indication: BLOOD CHOLESTEROL INCREASED
     Dates: start: 20151104
  4. ALIROCUMAB PREFILLED PEN [Concomitant]
     Active Substance: ALIROCUMAB
     Indication: BLOOD CHOLESTEROL INCREASED
     Dates: start: 20151008, end: 20151008
  5. ALIROCUMAB PREFILLED PEN [Concomitant]
     Active Substance: ALIROCUMAB
     Indication: BLOOD CHOLESTEROL INCREASED
     Dates: start: 20151021, end: 20151021
  6. PRALUENT [Suspect]
     Active Substance: ALIROCUMAB
     Indication: BLOOD CHOLESTEROL INCREASED
     Route: 065
     Dates: start: 20150812
  7. PRALUENT [Suspect]
     Active Substance: ALIROCUMAB
     Indication: BLOOD CHOLESTEROL INCREASED
     Route: 065
     Dates: start: 20151021, end: 20151021
  8. ALIROCUMAB PREFILLED PEN [Concomitant]
     Active Substance: ALIROCUMAB
     Indication: BLOOD CHOLESTEROL INCREASED
     Dates: start: 20150812

REACTIONS (9)
  - Nasopharyngitis [Unknown]
  - Influenza like illness [Unknown]
  - Throat irritation [Unknown]
  - Chills [Unknown]
  - Musculoskeletal stiffness [Unknown]
  - Fatigue [Unknown]
  - Myalgia [Unknown]
  - Cough [Unknown]
  - Drug ineffective [Unknown]

NARRATIVE: CASE EVENT DATE: 20151023
